FAERS Safety Report 9281843 (Version 54)
Quarter: 2020Q4

REPORT INFORMATION
  Report Type: Other
  Country: CA (occurrence: CA)
  Receive Date: 20130510
  Receipt Date: 20201230
  Transmission Date: 20210114
  Serious: Yes (Hospitalization, Other)
  Sender: FDA-Public Use
  Company Number: CA-ROCHE-1146900

PATIENT
  Age: 49 Year
  Sex: Female
  Weight: 72 kg

DRUGS (27)
  1. ACTEMRA [Suspect]
     Active Substance: TOCILIZUMAB
     Dosage: 20 MG PER ML?LAST PIR RECEIVED AT THE PROGRAM LEVEL WAS 30-NOV-2016 (NO FURTHER PIRS HAVE BEEN PROVI
     Route: 042
     Dates: start: 20150416, end: 20190501
  2. ACTEMRA [Suspect]
     Active Substance: TOCILIZUMAB
     Dosage: 20MG/ML, ONGOING,LAST PIR RECEIVED AT THE PROGRAM LEVEL WAS 30-NOV-2016 (NO FURTHER PIRS HAVE BEEN P
     Route: 042
     Dates: start: 20190605
  3. FOLIC ACID. [Concomitant]
     Active Substance: FOLIC ACID
     Indication: PRODUCT USED FOR UNKNOWN INDICATION
  4. HYDROCHLOROTHIAZIDE. [Concomitant]
     Active Substance: HYDROCHLOROTHIAZIDE
     Indication: PRODUCT USED FOR UNKNOWN INDICATION
  5. CLINDAMYCIN. [Suspect]
     Active Substance: CLINDAMYCIN
     Indication: DENTAL CARE
     Route: 065
  6. CELEBREX [Concomitant]
     Active Substance: CELECOXIB
     Indication: PRODUCT USED FOR UNKNOWN INDICATION
  7. METHOTREXATE. [Concomitant]
     Active Substance: METHOTREXATE
     Indication: PRODUCT USED FOR UNKNOWN INDICATION
     Route: 048
  8. ACTEMRA [Suspect]
     Active Substance: TOCILIZUMAB
     Route: 042
     Dates: start: 20150514
  9. ACTEMRA [Suspect]
     Active Substance: TOCILIZUMAB
     Route: 042
     Dates: start: 20160825
  10. ACTEMRA [Suspect]
     Active Substance: TOCILIZUMAB
     Indication: RHEUMATOID ARTHRITIS
     Route: 058
     Dates: start: 20160308, end: 2016
  11. SIMPONI [Concomitant]
     Active Substance: GOLIMUMAB
     Indication: PRODUCT USED FOR UNKNOWN INDICATION
  12. TYLENOL [Concomitant]
     Active Substance: ACETAMINOPHEN
     Indication: PRODUCT USED FOR UNKNOWN INDICATION
  13. PREDNISONE. [Concomitant]
     Active Substance: PREDNISONE
     Indication: PRODUCT USED FOR UNKNOWN INDICATION
     Dosage: INCREASED, DAILY
     Route: 065
  14. TRAMADOL. [Concomitant]
     Active Substance: TRAMADOL
     Indication: PRODUCT USED FOR UNKNOWN INDICATION
     Dosage: 3-4 TABS DAILY
  15. ACTEMRA [Suspect]
     Active Substance: TOCILIZUMAB
     Route: 042
     Dates: start: 20160727
  16. PANTOPRAZOLE [Concomitant]
     Active Substance: PANTOPRAZOLE
     Indication: PRODUCT USED FOR UNKNOWN INDICATION
  17. RAMIPRIL. [Concomitant]
     Active Substance: RAMIPRIL
     Indication: PRODUCT USED FOR UNKNOWN INDICATION
  18. ACTEMRA [Suspect]
     Active Substance: TOCILIZUMAB
     Indication: RHEUMATOID ARTHRITIS
     Dosage: MOST RECENT DOSE OF TOCILIZUMAB WAS ON 15/JAN/2013
     Route: 042
     Dates: start: 20120425
  19. ACTEMRA [Suspect]
     Active Substance: TOCILIZUMAB
     Indication: RHEUMATOID ARTHRITIS
     Dosage: PIR RECEIVED FOR 12-MAR-2015; THOUGH BATCH/LOT NUMBER WAS NOT PROVIDED
     Route: 042
     Dates: start: 20140320, end: 20150312
  20. PREDNISONE. [Concomitant]
     Active Substance: PREDNISONE
     Dosage: INCREASED, DAILY
     Route: 065
  21. ROSUVASTATIN. [Concomitant]
     Active Substance: ROSUVASTATIN
     Indication: PRODUCT USED FOR UNKNOWN INDICATION
  22. ACTEMRA [Suspect]
     Active Substance: TOCILIZUMAB
     Indication: RHEUMATOID FACTOR POSITIVE
     Route: 042
     Dates: start: 20120524, end: 20130115
  23. TRAMACET [Concomitant]
     Active Substance: ACETAMINOPHEN\TRAMADOL
     Indication: PRODUCT USED FOR UNKNOWN INDICATION
  24. OMEPRAZOLE. [Concomitant]
     Active Substance: OMEPRAZOLE
     Indication: PRODUCT USED FOR UNKNOWN INDICATION
  25. ACTEMRA [Suspect]
     Active Substance: TOCILIZUMAB
     Indication: RHEUMATOID ARTHRITIS
  26. ACTONEL [Concomitant]
     Active Substance: RISEDRONATE SODIUM
     Indication: PRODUCT USED FOR UNKNOWN INDICATION
  27. METOPROLOL. [Concomitant]
     Active Substance: METOPROLOL
     Indication: PRODUCT USED FOR UNKNOWN INDICATION

REACTIONS (45)
  - Eye pain [Unknown]
  - Herpes zoster [Recovered/Resolved]
  - Rheumatoid arthritis [Not Recovered/Not Resolved]
  - Contusion [Not Recovered/Not Resolved]
  - Joint stiffness [Unknown]
  - Fungal skin infection [Unknown]
  - Rash [Unknown]
  - Arthritis infective [Unknown]
  - Dehydration [Unknown]
  - Foot deformity [Unknown]
  - Vasodilatation [Unknown]
  - Lung disorder [Unknown]
  - Blood pressure diastolic decreased [Unknown]
  - Localised infection [Not Recovered/Not Resolved]
  - Infected skin ulcer [Recovered/Resolved]
  - Toothache [Unknown]
  - Tooth disorder [Unknown]
  - Skin discolouration [Not Recovered/Not Resolved]
  - Asthenia [Not Recovered/Not Resolved]
  - Headache [Not Recovered/Not Resolved]
  - Infection [Unknown]
  - Abdominal discomfort [Unknown]
  - Limb deformity [Not Recovered/Not Resolved]
  - Muscular weakness [Not Recovered/Not Resolved]
  - Wound complication [Not Recovered/Not Resolved]
  - Gastroenteritis viral [Unknown]
  - Arthralgia [Unknown]
  - Cough [Recovering/Resolving]
  - Myalgia [Unknown]
  - Joint effusion [Unknown]
  - Blood pressure systolic increased [Unknown]
  - Impaired healing [Recovered/Resolved]
  - Urinary tract infection [Unknown]
  - Limb injury [Recovered/Resolved]
  - Vomiting [Unknown]
  - Nasopharyngitis [Unknown]
  - Limb injury [Unknown]
  - Headache [Unknown]
  - Arthropathy [Unknown]
  - Infusion related reaction [Unknown]
  - Pneumonia [Not Recovered/Not Resolved]
  - Fall [Unknown]
  - Joint dislocation [Recovered/Resolved]
  - Joint swelling [Recovering/Resolving]
  - Middle insomnia [Unknown]

NARRATIVE: CASE EVENT DATE: 20121009
